FAERS Safety Report 9351817 (Version 1)
Quarter: 2013Q2

REPORT INFORMATION
  Report Type: Report from Study
  Country: BR (occurrence: BR)
  Receive Date: 20130617
  Receipt Date: 20130617
  Transmission Date: 20140414
  Serious: Yes (Hospitalization)
  Sender: FDA-Public Use
  Company Number: BR-BAYER-2013-072156

PATIENT
  Age: 48 Year
  Sex: Male

DRUGS (1)
  1. BETAFERON [Suspect]
     Dosage: UNK
     Route: 058
     Dates: end: 20130611

REACTIONS (3)
  - Localised infection [Recovered/Resolved with Sequelae]
  - Local swelling [Recovered/Resolved with Sequelae]
  - Fibrosis [None]
